FAERS Safety Report 7067943-4 (Version None)
Quarter: 2010Q4

REPORT INFORMATION
  Report Type: 
  Country: None (occurrence: None)
  Receive Date: 20101028
  Receipt Date: 20101020
  Transmission Date: 20110411
  Serious: Yes (Hospitalization, Disabling)
  Sender: FDA-Public Use
  Company Number: GB-ABBOTT-10P-167-0677554-00

PATIENT
  Age: 83 Year
  Sex: Female

DRUGS (6)
  1. VALPROATE SEMISODIUM [Suspect]
     Indication: BIPOLAR DISORDER
     Route: 048
     Dates: start: 20100809, end: 20100821
  2. VALPROATE SEMISODIUM [Suspect]
     Route: 048
  3. VALPROATE SEMISODIUM [Suspect]
     Route: 048
  4. DICLOFENAC SODIUM [Concomitant]
     Indication: PRODUCT USED FOR UNKNOWN INDICATION
     Dates: start: 20100726, end: 20100806
  5. FUROSEMIDE [Concomitant]
     Indication: PRODUCT USED FOR UNKNOWN INDICATION
  6. LANSOPRAZOLE [Concomitant]
     Indication: PRODUCT USED FOR UNKNOWN INDICATION
     Dates: start: 20100806

REACTIONS (2)
  - ARTHRALGIA [None]
  - JOINT SWELLING [None]
